FAERS Safety Report 4696718-6 (Version None)
Quarter: 2005Q2

REPORT INFORMATION
  Report Type: 
  Country: None (occurrence: None)
  Receive Date: 20050620
  Receipt Date: 20050610
  Transmission Date: 20051028
  Serious: Yes (Hospitalization)
  Sender: FDA-Public Use
  Company Number: 2005US-00547

PATIENT
  Age: 75 Year
  Sex: Female

DRUGS (2)
  1. METFORMIN HYDROCHLORIDE(METFORMIN HYDROCHLORIDE) UNKNOWN [Suspect]
     Indication: DIABETES MELLITUS
     Dosage: 1 G, TID
  2. DICLOFENAC SODIUM [Suspect]
     Indication: CHOLELITHIASIS
     Dosage: 50 MG,TID

REACTIONS (15)
  - ABDOMINAL PAIN UPPER [None]
  - ABSCESS [None]
  - ANOREXIA [None]
  - ANURIA [None]
  - BLOOD CULTURE POSITIVE [None]
  - CONFUSIONAL STATE [None]
  - ELECTROCARDIOGRAM P WAVE ABNORMAL [None]
  - ELECTROCARDIOGRAM QRS COMPLEX PROLONGED [None]
  - ELECTROCARDIOGRAM T WAVE PEAKED [None]
  - GALLBLADDER PERFORATION [None]
  - GENERAL PHYSICAL HEALTH DETERIORATION [None]
  - HAEMODIALYSIS [None]
  - METABOLIC ACIDOSIS [None]
  - NAUSEA [None]
  - RENAL FAILURE ACUTE [None]
